FAERS Safety Report 19177042 (Version 1)
Quarter: 2021Q2

REPORT INFORMATION
  Report Type: Report from Study
  Country: BR (occurrence: BR)
  Receive Date: 20210424
  Receipt Date: 20210424
  Transmission Date: 20210717
  Serious: Yes (Death)
  Sender: FDA-Public Use
  Company Number: NVSC2021BR092871

PATIENT
  Sex: Male

DRUGS (2)
  1. MIFLONIDE [Suspect]
     Active Substance: BUDESONIDE
     Indication: PRODUCT USED FOR UNKNOWN INDICATION
     Dosage: 200 UG (60 CAPSULES)
     Route: 065
  2. MIFLONIDE [Suspect]
     Active Substance: BUDESONIDE
     Dosage: 400 UG (60 CAPSULES)
     Route: 065

REACTIONS (1)
  - Brain neoplasm [Fatal]
